FAERS Safety Report 11605900 (Version 4)
Quarter: 2016Q3

REPORT INFORMATION
  Report Type: Spontaneous
  Country: US (occurrence: US)
  Receive Date: 20151007
  Receipt Date: 20160824
  Transmission Date: 20161109
  Serious: Yes (Other)
  Sender: FDA-Public Use
  Company Number: US-GLAXOSMITHKLINE-US2015142173

PATIENT
  Age: 83 Year
  Sex: Female

DRUGS (17)
  1. REQUIP XL [Suspect]
     Active Substance: ROPINIROLE HYDROCHLORIDE
     Dosage: 8 MG, QD
     Route: 048
  2. BUTALBITAL + PARACETAMOL [Concomitant]
  3. TRAMADOL. [Concomitant]
     Active Substance: TRAMADOL
  4. REQUIP XL [Suspect]
     Active Substance: ROPINIROLE HYDROCHLORIDE
     Indication: BACK DISORDER
     Dosage: UNK, U
     Route: 048
  5. PRAVASTATIN. [Concomitant]
     Active Substance: PRAVASTATIN
  6. COMBIVENT [Concomitant]
     Active Substance: ALBUTEROL SULFATE\IPRATROPIUM BROMIDE
  7. ECOTRIN [Concomitant]
     Active Substance: ASPIRIN
  8. TOPAMAX [Concomitant]
     Active Substance: TOPIRAMATE
  9. ALENDRONATE [Concomitant]
     Active Substance: ALENDRONATE SODIUM
  10. REQUIP [Suspect]
     Active Substance: ROPINIROLE HYDROCHLORIDE
     Indication: SPINAL LAMINECTOMY
     Dosage: 0.5 MG, UNK
     Dates: start: 2013
  11. LOSARTAN. [Concomitant]
     Active Substance: LOSARTAN
  12. MONTELUKAST [Concomitant]
     Active Substance: MONTELUKAST SODIUM
  13. ROPINIROLE. [Suspect]
     Active Substance: ROPINIROLE
     Indication: PRODUCT USED FOR UNKNOWN INDICATION
     Dosage: 1.5 MG, QD
     Route: 065
     Dates: start: 2014
  14. METOPROLOL TARTRATE. [Concomitant]
     Active Substance: METOPROLOL TARTRATE
  15. VITAMIN D3 [Concomitant]
     Active Substance: CHOLECALCIFEROL
  16. LEVOTHYROXINE. [Concomitant]
     Active Substance: LEVOTHYROXINE
  17. PRESERVISION [Concomitant]
     Active Substance: MINERALS\VITAMINS

REACTIONS (15)
  - Neuralgia [Not Recovered/Not Resolved]
  - Road traffic accident [Unknown]
  - Fall [Unknown]
  - Contusion [Unknown]
  - Cerebrovascular accident [Not Recovered/Not Resolved]
  - Product use issue [Unknown]
  - Drug ineffective for unapproved indication [Unknown]
  - Product substitution issue [Unknown]
  - Pain [Unknown]
  - Sleep disorder [Unknown]
  - Off label use [Unknown]
  - Back pain [Unknown]
  - Spinal fracture [Unknown]
  - Muscle spasms [Unknown]
  - Ligament sprain [Unknown]

NARRATIVE: CASE EVENT DATE: 20160329
